FAERS Safety Report 7883047-2 (Version None)
Quarter: 2011Q4

REPORT INFORMATION
  Report Type: 
  Country: None (occurrence: None)
  Receive Date: 20111102
  Receipt Date: 20111026
  Transmission Date: 20120403
  Serious: Yes (Hospitalization)
  Sender: FDA-Public Use
  Company Number: US-BIOGENIDEC-2011BI038434

PATIENT
  Age: 32 Year
  Sex: Female

DRUGS (1)
  1. AVONEX [Suspect]
     Indication: MULTIPLE SCLEROSIS
     Route: 030
     Dates: start: 20110601, end: 20111004

REACTIONS (12)
  - INSOMNIA [None]
  - DEPRESSION [None]
  - LACERATION [None]
  - WEIGHT DECREASED [None]
  - INFECTION [None]
  - FALL [None]
  - DRUG INEFFECTIVE [None]
  - MULTIPLE SCLEROSIS [None]
  - HALLUCINATION [None]
  - ABASIA [None]
  - MOBILITY DECREASED [None]
  - HEMIPARESIS [None]
